FAERS Safety Report 5675874-7 (Version None)
Quarter: 2008Q1

REPORT INFORMATION
  Report Type: 
  Country: None (occurrence: None)
  Receive Date: 20080321
  Receipt Date: 20080317
  Transmission Date: 20080703
  Serious: Yes (Death, Hospitalization)
  Sender: FDA-Public Use
  Company Number: JP-AVENTIS-200712636JP

PATIENT
  Age: 68 Year
  Sex: Female

DRUGS (9)
  1. ARAVA [Suspect]
     Indication: RHEUMATOID ARTHRITIS
     Route: 048
     Dates: start: 20070531, end: 20070920
  2. METHOTREXATE [Concomitant]
     Indication: RHEUMATOID ARTHRITIS
     Dosage: DOSE: 4 MG/WEEK
     Route: 048
     Dates: start: 20050105, end: 20050301
  3. METHOTREXATE [Concomitant]
     Dosage: DOSE: 6 MG/WEEK
     Route: 048
     Dates: start: 20050302, end: 20070531
  4. FAMOTIDINE [Concomitant]
     Route: 048
  5. OSTELUC [Concomitant]
     Route: 048
  6. FOLIAMIN [Concomitant]
     Route: 048
  7. AZULFIDINE EN-TABS [Concomitant]
     Route: 048
  8. OSPAIN [Concomitant]
     Route: 048
  9. ULGUT [Concomitant]
     Route: 048

REACTIONS (2)
  - INTERSTITIAL LUNG DISEASE [None]
  - RESPIRATORY FAILURE [None]
